FAERS Safety Report 9251736 (Version 1)
Quarter: 2013Q1

REPORT INFORMATION
  Report Type: Spontaneous
  Country: US (occurrence: None)
  Receive Date: 20130305
  Receipt Date: 20130305
  Transmission Date: 20140127
  Serious: Yes (Hospitalization)
  Sender: FDA-Public Use
  Company Number: 163-21880-12090761

PATIENT
  Age: 57 Year
  Sex: Male
  Weight: 108.86 kg

DRUGS (12)
  1. REVLIMID (LENALIDOMIDE) (CAPSULES) [Suspect]
     Indication: PLASMA CELL MYELOMA
     Dosage: 01/26/2007 - ONGOING, CAPSULE, 10 MG, 21 IN 28 D, PO
  2. ACYCLOVIR (ACICLOVIR) (ACICLOVIR) [Concomitant]
  3. AMBIEN (ZOLPIDEM TARTRATE) [Concomitant]
  4. BACLOFEN (BACLOFEN) [Concomitant]
  5. BACTRIM (BACTRIM) [Concomitant]
  6. DEXAMETHASONE (DEXAMETHASONE) [Concomitant]
  7. FOLIC ACID (FOLIC ACID) [Concomitant]
  8. GABAPENTIN (GABAPENTIN) [Concomitant]
  9. LASIX (FUROSEMIDE) [Concomitant]
  10. MULTIVITAMIN (MULTIVITAMINS) [Concomitant]
  11. VITAMIN B12 (CYANOCOBALAMIN) [Concomitant]
  12. VITAMIN D3 (COLECALCIFEROL) [Concomitant]

REACTIONS (1)
  - Thrombosis [None]
